FAERS Safety Report 9050974 (Version 1)
Quarter: 2013Q1

REPORT INFORMATION
  Report Type: Spontaneous
  Country: US (occurrence: US)
  Receive Date: 20130205
  Receipt Date: 20130205
  Transmission Date: 20140127
  Serious: Yes (Hospitalization, Other)
  Sender: FDA-Public Use
  Company Number: US-PFIZER INC-2013043623

PATIENT
  Age: 55 Year
  Sex: Female
  Weight: 71.66 kg

DRUGS (1)
  1. CHANTIX [Suspect]
     Indication: SMOKING CESSATION THERAPY
     Dosage: 0.5 MG, UNK
     Dates: start: 20120815, end: 201208

REACTIONS (2)
  - Diverticulum [Recovered/Resolved]
  - Gastrointestinal disorder [Unknown]
